FAERS Safety Report 5403046-X (Version None)
Quarter: 2007Q3

REPORT INFORMATION
  Report Type: 
  Country: None (occurrence: None)
  Receive Date: 20070801
  Receipt Date: 20070724
  Transmission Date: 20080115
  Serious: Yes (Hospitalization)
  Sender: FDA-Public Use
  Company Number: FR-SANOFI-SYNTHELABO-A02200702214

PATIENT
  Age: 74 Year
  Sex: Female

DRUGS (10)
  1. DOMPERIDONE [Concomitant]
     Indication: DRUG USE FOR UNKNOWN INDICATION
     Dosage: UNK
     Route: 048
     Dates: start: 20060101
  2. MOLSIDOMINE [Concomitant]
     Indication: DRUG USE FOR UNKNOWN INDICATION
     Dosage: UNK
     Route: 048
     Dates: start: 20060101
  3. INEGY [Suspect]
     Indication: DRUG USE FOR UNKNOWN INDICATION
     Dosage: UNK
     Route: 048
     Dates: start: 20060101
  4. KENZEN [Suspect]
     Indication: DRUG USE FOR UNKNOWN INDICATION
     Dosage: UNK
     Route: 048
     Dates: start: 20060101
  5. CARDENSIEL [Suspect]
     Dosage: UNK
     Route: 048
     Dates: start: 20060101
  6. KALEORID [Suspect]
     Indication: DRUG USE FOR UNKNOWN INDICATION
     Route: 048
  7. LASIX [Suspect]
     Indication: DRUG USE FOR UNKNOWN INDICATION
     Dosage: UNK
     Route: 065
     Dates: start: 20060101
  8. KARDEGIC [Suspect]
     Indication: MYOCARDIAL INFARCTION
     Dosage: UNK
     Route: 048
     Dates: start: 20060101
  9. PLAVIX [Suspect]
     Indication: MYOCARDIAL INFARCTION
     Route: 048
     Dates: start: 20060101
  10. OMEPRAZOLE [Suspect]
     Indication: DRUG USE FOR UNKNOWN INDICATION
     Dosage: UNK
     Route: 048
     Dates: start: 20060101

REACTIONS (1)
  - APHTHOUS STOMATITIS [None]
